FAERS Safety Report 5457263-3 (Version None)
Quarter: 2007Q3

REPORT INFORMATION
  Report Type: 
  Country: None (occurrence: None)
  Receive Date: 20070918
  Receipt Date: 20070206
  Transmission Date: 20080115
  Serious: No
  Sender: FDA-Public Use
  Company Number: US-ASTRAZENECA-2007UW02482

PATIENT
  Age: 24 Year
  Sex: Female
  Weight: 99.8 kg

DRUGS (2)
  1. SEROQUEL [Suspect]
     Indication: ANXIETY
     Route: 048
  2. SEROQUEL [Suspect]
     Indication: SLEEP DISORDER
     Route: 048

REACTIONS (6)
  - DISTURBANCE IN ATTENTION [None]
  - HALLUCINATION, VISUAL [None]
  - HEAD TITUBATION [None]
  - SINUSITIS [None]
  - SPEECH DISORDER [None]
  - VISUAL DISTURBANCE [None]
